FAERS Safety Report 19749374 (Version 1)
Quarter: 2021Q3

REPORT INFORMATION
  Report Type: Spontaneous
  Country: SE (occurrence: SE)
  Receive Date: 20210826
  Receipt Date: 20210826
  Transmission Date: 20211014
  Serious: Yes (Hospitalization)
  Sender: FDA-Public Use
  Company Number: SE-TEVA-2021-SE-1944993

PATIENT
  Age: 61 Year
  Sex: Female

DRUGS (1)
  1. OMEPRAZOL TEVA 20 MG ENTEROKAPSEL, HARD [Suspect]
     Active Substance: OMEPRAZOLE
     Indication: GASTROOESOPHAGEAL REFLUX DISEASE
     Dosage: 20 MILLIGRAM DAILY; 20 MG 1 TABLET ONCE DAILY,
     Route: 048
     Dates: start: 20210501, end: 20210729

REACTIONS (3)
  - Peripheral swelling [Recovered/Resolved]
  - Reaction to colouring [Recovered/Resolved]
  - Ecchymosis [Recovered/Resolved]

NARRATIVE: CASE EVENT DATE: 20210727
